FAERS Safety Report 13570966 (Version 1)
Quarter: 2017Q2

REPORT INFORMATION
  Report Type: Spontaneous
  Country: FI (occurrence: FI)
  Receive Date: 20170523
  Receipt Date: 20170523
  Transmission Date: 20170830
  Serious: Yes (Life-Threatening, Hospitalization)
  Sender: FDA-Public Use
  Company Number: FI-ROCHE-1934010

PATIENT
  Age: 44 Year
  Sex: Male

DRUGS (3)
  1. OXALIPLATIN. [Concomitant]
     Active Substance: OXALIPLATIN
     Indication: GASTROINTESTINAL CANCER METASTATIC
     Route: 042
  2. XELODA [Concomitant]
     Active Substance: CAPECITABINE
     Indication: GASTROINTESTINAL CANCER METASTATIC
     Route: 048
  3. AVASTIN [Suspect]
     Active Substance: BEVACIZUMAB
     Indication: GASTROINTESTINAL CANCER METASTATIC
     Dosage: 375 MG
     Route: 042
     Dates: start: 20170331, end: 20170413

REACTIONS (5)
  - Anastomotic leak [Unknown]
  - Small intestinal perforation [Unknown]
  - Adhesion [Unknown]
  - Impaired healing [Not Recovered/Not Resolved]
  - Infection [Unknown]

NARRATIVE: CASE EVENT DATE: 20170418
